FAERS Safety Report 8509044-1 (Version None)
Quarter: 2012Q3

REPORT INFORMATION
  Report Type: 
  Country: None (occurrence: None)
  Receive Date: 20120703
  Receipt Date: 20120618
  Transmission Date: 20120928
  Serious: Yes (Hospitalization)
  Sender: FDA-Public Use
  Company Number: COL_11826_2012

PATIENT
  Sex: Female

DRUGS (2)
  1. COLGATE MAX WHITE CRYSTAL MINT TOOTHPASTE [Suspect]
     Indication: DENTAL CARIES
     Dosage: (NI/ ONCE/ ORAL)
     Route: 048
     Dates: start: 20120521
  2. ESCITALOPRAM [Concomitant]

REACTIONS (2)
  - MALAISE [None]
  - DRUG HYPERSENSITIVITY [None]
